FAERS Safety Report 20607280 (Version 1)
Quarter: 2022Q1

REPORT INFORMATION
  Report Type: Spontaneous
  Country: US (occurrence: None)
  Receive Date: 20220316
  Receipt Date: 20220316
  Transmission Date: 20220424
  Serious: Yes (Other)
  Sender: FDA-Public Use
  Company Number: None

PATIENT
  Age: 57 Year
  Sex: Male

DRUGS (17)
  1. OPSUMIT [Suspect]
     Active Substance: MACITENTAN
     Indication: Pulmonary arterial hypertension
     Dosage: FREQUENCY : DAILY;?
     Route: 048
     Dates: start: 20190503
  2. SILDENAFIL [Concomitant]
     Active Substance: SILDENAFIL
  3. TYLENOL [Concomitant]
     Active Substance: ACETAMINOPHEN
  4. TORSEMIDE [Concomitant]
     Active Substance: TORSEMIDE
  5. LOSARTAN [Concomitant]
     Active Substance: LOSARTAN
  6. SERTRALINE [Concomitant]
     Active Substance: SERTRALINE HYDROCHLORIDE
  7. CARVEDILOL [Concomitant]
     Active Substance: CARVEDILOL
  8. TRAMADOL [Concomitant]
     Active Substance: TRAMADOL
  9. CEFADROXIL [Concomitant]
     Active Substance: CEFADROXIL
  10. CLEARLAX [Concomitant]
     Active Substance: POLYETHYLENE GLYCOL 3350
  11. BISACODYL [Concomitant]
     Active Substance: BISACODYL
  12. SIMETHICONE (DIMETHICONE) [Concomitant]
     Active Substance: DIMETHICONE
  13. GAVILYTE - C [Concomitant]
     Active Substance: POLYETHYLENE GLYCOL 3350\POTASSIUM CHLORIDE\SODIUM BICARBONATE\SODIUM CHLORIDE\SODIUM SULFATE
  14. SIMVASTATIN [Concomitant]
     Active Substance: SIMVASTATIN
  15. WIXELA INHUB [Concomitant]
     Active Substance: FLUTICASONE PROPIONATE\SALMETEROL XINAFOATE
  16. ALBUTEROL SULFATE [Concomitant]
     Active Substance: ALBUTEROL SULFATE
  17. ALBUTEROL [Concomitant]
     Active Substance: ALBUTEROL

REACTIONS (1)
  - Pelvic abscess [None]

NARRATIVE: CASE EVENT DATE: 20220220
